FAERS Safety Report 6374124-6 (Version None)
Quarter: 2009Q3

REPORT INFORMATION
  Report Type: 
  Country: None (occurrence: None)
  Receive Date: 20090924
  Receipt Date: 20090617
  Transmission Date: 20100115
  Serious: No
  Sender: FDA-Public Use
  Company Number: US-ASTRAZENECA-2009UW15753

PATIENT
  Age: 59 Year
  Sex: Male

DRUGS (8)
  1. SEROQUEL [Suspect]
     Route: 048
  2. SKELAXIN [Concomitant]
  3. AMLODIPINE [Concomitant]
  4. NAPROXEN [Concomitant]
  5. GABAPENTIN [Concomitant]
  6. ZOLPIDEM [Concomitant]
  7. VARDENAFIL [Concomitant]
  8. MULTI-VITAMIN [Concomitant]

REACTIONS (2)
  - DRUG INTOLERANCE [None]
  - HEADACHE [None]
